FAERS Safety Report 15690631 (Version 1)
Quarter: 2018Q4

REPORT INFORMATION
  Report Type: Spontaneous
  Country: US (occurrence: US)
  Receive Date: 20181127
  Receipt Date: 20181127
  Transmission Date: 20190205
  Serious: Yes (Death)
  Sender: FDA-Public Use
  Company Number: None

PATIENT
  Age: 65 Year
  Sex: Male

DRUGS (2)
  1. JADENU [Suspect]
     Active Substance: DEFERASIROX
     Indication: EOSINOPHILIA
     Route: 048
     Dates: start: 20161003
  2. JADENU [Suspect]
     Active Substance: DEFERASIROX
     Route: 048
     Dates: start: 20161003

REACTIONS (1)
  - Death [None]
